FAERS Safety Report 6121027-8 (Version None)
Quarter: 2009Q1

REPORT INFORMATION
  Report Type: 
  Country: None (occurrence: None)
  Receive Date: 20090317
  Receipt Date: 20090306
  Transmission Date: 20090719
  Serious: Yes (Other)
  Sender: FDA-Public Use
  Company Number: PHHY2009JP08554

PATIENT
  Age: 86 Year
  Sex: Female

DRUGS (11)
  1. DIOVAN [Suspect]
     Dosage: 80 MG ONCE DAILY
     Route: 048
     Dates: start: 20071226, end: 20080518
  2. DIOVAN [Suspect]
     Dosage: 40 MG ONCE DAILY
     Route: 048
     Dates: start: 20080519
  3. KERLONG [Concomitant]
     Indication: HYPERTENSION
     Dosage: 7.5 MG,
     Route: 048
     Dates: start: 20071024, end: 20080510
  4. NORVASC [Concomitant]
     Indication: HYPERTENSION
     Dosage: 5 MG, UNK
     Route: 048
     Dates: start: 20071024, end: 20080510
  5. FLUITRAN [Concomitant]
     Indication: HYPERTENSION
     Dosage: 1 MG, UNK
     Route: 048
     Dates: start: 20071024, end: 20080510
  6. CARDENALIN [Concomitant]
     Indication: HYPERTENSION
     Dosage: 2 MG, UNK
     Route: 048
     Dates: start: 20071024, end: 20080510
  7. BLOPRESS [Concomitant]
     Indication: HYPERTENSION
     Dosage: 4 MG, UNK
     Route: 048
     Dates: start: 20071024, end: 20071225
  8. ARTIST [Concomitant]
     Indication: HYPERTENSION
     Dosage: 7.5 MG, UNK
     Route: 048
     Dates: start: 20080604
  9. EPLERENONE [Concomitant]
     Indication: HYPERTENSION
     Dosage: 25 MG, UNK
     Route: 048
     Dates: start: 20081029
  10. LIPITOR [Concomitant]
     Dosage: 10 MG, UNK
     Route: 048
     Dates: start: 20071024
  11. ASPIRIN [Concomitant]
     Dosage: 100 MG, UNK
     Route: 048
     Dates: start: 20080511

REACTIONS (3)
  - ANGINA UNSTABLE [None]
  - CARDIAC FAILURE ACUTE [None]
  - PERCUTANEOUS CORONARY INTERVENTION [None]
